FAERS Safety Report 9314702 (Version 3)
Quarter: 2013Q4

REPORT INFORMATION
  Report Type: Spontaneous
  Country: JP (occurrence: JP)
  Receive Date: 20130529
  Receipt Date: 20131001
  Transmission Date: 20140711
  Serious: Yes (Other)
  Sender: FDA-Public Use
  Company Number: JP-SANOFI-AVENTIS-2013SA051891

PATIENT
  Age: 68 Year
  Sex: Male
  Weight: 45 kg

DRUGS (26)
  1. ELPLAT [Suspect]
     Indication: COLON CANCER
     Route: 041
     Dates: start: 20110802, end: 20110802
  2. ELPLAT [Suspect]
     Indication: COLON CANCER
     Route: 041
     Dates: start: 20120104, end: 20120104
  3. ELPLAT [Suspect]
     Indication: COLON CANCER
     Route: 041
     Dates: start: 20110817, end: 20110817
  4. ELPLAT [Suspect]
     Indication: COLON CANCER
     Route: 041
     Dates: start: 20110907, end: 20110907
  5. ELPLAT [Suspect]
     Indication: COLON CANCER
     Route: 041
     Dates: start: 20110928, end: 20110928
  6. ELPLAT [Suspect]
     Indication: COLON CANCER
     Route: 041
     Dates: start: 20111019, end: 20111019
  7. ELPLAT [Suspect]
     Indication: COLON CANCER
     Route: 041
     Dates: start: 20111207, end: 20111207
  8. ELPLAT [Suspect]
     Indication: COLON CANCER
     Route: 041
     Dates: start: 20120125, end: 20120125
  9. ELPLAT [Suspect]
     Indication: COLON CANCER
     Route: 041
     Dates: start: 20120229, end: 20120229
  10. ELPLAT [Suspect]
     Indication: COLON CANCER
     Route: 041
     Dates: start: 20120229, end: 20120229
  11. ELPLAT [Suspect]
     Indication: COLON CANCER
     Route: 041
     Dates: start: 20120321, end: 20120321
  12. VECTIBIX [Suspect]
     Indication: COLON CANCER
     Route: 041
     Dates: start: 20120606, end: 20120606
  13. VECTIBIX [Suspect]
     Indication: COLON CANCER
     Route: 041
     Dates: start: 20120627, end: 20120627
  14. VECTIBIX [Suspect]
     Indication: COLON CANCER
     Route: 041
     Dates: start: 20120718, end: 20120718
  15. VECTIBIX [Suspect]
     Indication: COLON CANCER
     Route: 041
     Dates: start: 20120808, end: 20120808
  16. VECTIBIX [Suspect]
     Indication: COLON CANCER
     Route: 041
     Dates: start: 20120829, end: 20120829
  17. TS-1 [Suspect]
     Indication: COLON CANCER
     Route: 048
     Dates: start: 20120916, end: 20120929
  18. TS-1 [Suspect]
     Indication: COLON CANCER
     Route: 048
     Dates: start: 20121023, end: 20121105
  19. CALCIUM LEVOFOLINATE [Concomitant]
     Dates: start: 20110802, end: 20120321
  20. 5-FU [Concomitant]
     Route: 040
     Dates: start: 20110802, end: 20120321
  21. GRANISETRON HYDROCHLORIDE [Concomitant]
     Dates: start: 20110802, end: 20120321
  22. DEXART [Concomitant]
     Dates: start: 20110802, end: 20120321
  23. LACTEC [Concomitant]
     Dates: start: 20120831, end: 20120831
  24. ADONA [Concomitant]
     Dates: start: 20120831, end: 20120831
  25. TRANEXAMIC ACID [Concomitant]
     Dates: start: 20120831, end: 20120831
  26. RED BLOOD CELLS, CONCENTRATED [Concomitant]
     Dates: start: 20120831, end: 20120831

REACTIONS (1)
  - Varices oesophageal [Recovered/Resolved]
